FAERS Safety Report 5548042-7 (Version None)
Quarter: 2007Q4

REPORT INFORMATION
  Report Type: 
  Country: None (occurrence: None)
  Receive Date: 20071211
  Receipt Date: 20071101
  Transmission Date: 20080405
  Serious: Yes (Other)
  Sender: FDA-Public Use
  Company Number: IE-GENENTECH-252524

PATIENT
  Sex: Female

DRUGS (8)
  1. RITUXIMAB [Suspect]
     Indication: CRYOGLOBULINAEMIA
     Dosage: UNK, 1/WEEK
     Dates: start: 20040601
  2. CELLCEPT [Suspect]
     Indication: CRYOGLOBULINAEMIA
     Dosage: UNK, UNK
     Dates: start: 20060101
  3. STEROID (NAME UNKNOWN) [Suspect]
     Indication: CRYOGLOBULINAEMIA
     Dosage: 10 MG, UNK
     Dates: start: 20070501
  4. STEROID (NAME UNKNOWN) [Suspect]
     Dosage: 20 MG, UNK
     Dates: start: 20070501
  5. STEROID (NAME UNKNOWN) [Suspect]
     Dosage: 40 MG, UNK
  6. CYCLOPHOSPHAMIDE [Suspect]
     Indication: CRYOGLOBULINAEMIA
     Dates: start: 20051001
  7. CYCLOPHOSPHAMIDE [Suspect]
     Dosage: UNK, 1/MONTH
     Dates: start: 20070501
  8. MYFORTIC [Concomitant]
     Indication: DRUG USE FOR UNKNOWN INDICATION
     Dosage: UNK, UNK

REACTIONS (3)
  - PYREXIA [None]
  - RASH ERYTHEMATOUS [None]
  - SERUM SICKNESS [None]
